FAERS Safety Report 6695978-X (Version None)
Quarter: 2010Q2

REPORT INFORMATION
  Report Type: 
  Country: None (occurrence: None)
  Receive Date: 20100426
  Receipt Date: 20100415
  Transmission Date: 20101027
  Serious: Yes (Hospitalization, Disabling)
  Sender: FDA-Public Use
  Company Number: FR-KINGPHARMUSA00001-K201000123

PATIENT
  Age: 44 Year
  Sex: Female

DRUGS (1)
  1. ALTACE [Suspect]
     Indication: HYPERTENSION
     Dosage: 2.5 MG, QD
     Dates: start: 20091201, end: 20100111

REACTIONS (5)
  - DIZZINESS [None]
  - NAUSEA [None]
  - VERTIGO [None]
  - VESTIBULAR NEURONITIS [None]
  - VOMITING [None]
